FAERS Safety Report 9529101 (Version 1)
Quarter: 2013Q3

REPORT INFORMATION
  Report Type: Not Available
  Country: US (occurrence: US)
  Receive Date: 20130916
  Receipt Date: 20130916
  Transmission Date: 20140515
  Serious: Yes (Other)
  Sender: FDA-Public Use
  Company Number: US-LUNDBECK-DKLU1086284

PATIENT
  Sex: Male

DRUGS (5)
  1. ONFI [Suspect]
     Indication: GRAND MAL CONVULSION
     Dates: start: 20120522, end: 20121025
  2. LAMOTRIGINE [Concomitant]
     Indication: PRODUCT USED FOR UNKNOWN INDICATION
  3. TOPIRAMATE [Concomitant]
     Indication: PRODUCT USED FOR UNKNOWN INDICATION
  4. TIAGABINE [Concomitant]
     Indication: PRODUCT USED FOR UNKNOWN INDICATION
  5. OXCARBAZEPINE [Concomitant]
     Indication: PRODUCT USED FOR UNKNOWN INDICATION

REACTIONS (5)
  - Convulsion [Unknown]
  - Balance disorder [Unknown]
  - Lethargy [Unknown]
  - Irritability [Unknown]
  - Fatigue [Unknown]
